FAERS Safety Report 8881068 (Version 2)
Quarter: 2014Q2

REPORT INFORMATION
  Report Type: Spontaneous
  Country: CA (occurrence: CA)
  Receive Date: 20121101
  Receipt Date: 20131018
  Transmission Date: 20141212
  Serious: Yes (Other)
  Sender: FDA-Public Use
  Company Number: CA-PFIZER INC-2012266935

PATIENT
  Age: 31 Year
  Sex: Female

DRUGS (5)
  1. DILANTIN [Suspect]
     Indication: EPILEPSY
     Dosage: 300MG 5 DAYS A WEEK AND 175MG 2 DAYS A WEEK
     Dates: start: 1974
  2. DILANTIN [Suspect]
     Dosage: 100 MG, 3X/DAY
  3. DILANTIN [Suspect]
     Dosage: 300 MG, 1X/DAY AT BEDTIME
     Dates: end: 20111027
  4. PHENOBARBITAL [Concomitant]
     Indication: EPILEPSY
     Dosage: 75 MG, 1X/DAY IN MORNING
  5. PHENOBARBITAL [Concomitant]
     Dosage: 90 MG, 1X/DAY
     Dates: end: 20111027

REACTIONS (1)
  - Deafness unilateral [Recovered/Resolved]
